FAERS Safety Report 7322599-8 (Version None)
Quarter: 2011Q1

REPORT INFORMATION
  Report Type: 
  Country: None (occurrence: None)
  Receive Date: 20110301
  Receipt Date: 20110222
  Transmission Date: 20110831
  Serious: No
  Sender: FDA-Public Use
  Company Number: US-PFIZER INC-2011039424

PATIENT
  Sex: Male

DRUGS (1)
  1. LYRICA [Suspect]
     Indication: NEURALGIA
     Dosage: UNK

REACTIONS (3)
  - MUSCULAR WEAKNESS [None]
  - GAIT DISTURBANCE [None]
  - COORDINATION ABNORMAL [None]
